FAERS Safety Report 24378904 (Version 3)
Quarter: 2025Q1

REPORT INFORMATION
  Report Type: Spontaneous
  Country: CA (occurrence: CA)
  Receive Date: 20240930
  Receipt Date: 20250220
  Transmission Date: 20250409
  Serious: Yes (Death, Life-Threatening, Other)
  Sender: SANDOZ
  Company Number: CA-002147023-NVSC2023CA034556

PATIENT
  Age: 72 Year
  Sex: Female

DRUGS (12)
  1. OLANZAPINE [Suspect]
     Active Substance: OLANZAPINE
     Indication: Product used for unknown indication
     Route: 050
  2. OLANZAPINE [Suspect]
     Active Substance: OLANZAPINE
     Route: 065
  3. OLANZAPINE [Suspect]
     Active Substance: OLANZAPINE
     Route: 065
  4. QUETIAPINE FUMARATE [Suspect]
     Active Substance: QUETIAPINE FUMARATE
     Route: 048
  5. QUETIAPINE FUMARATE [Suspect]
     Active Substance: QUETIAPINE FUMARATE
     Indication: Product used for unknown indication
     Route: 065
  6. QUETIAPINE FUMARATE [Suspect]
     Active Substance: QUETIAPINE FUMARATE
     Route: 048
  7. QUETIAPINE FUMARATE [Suspect]
     Active Substance: QUETIAPINE FUMARATE
     Route: 065
  8. REXULTI [Suspect]
     Active Substance: BREXPIPRAZOLE
     Indication: Dementia
     Route: 065
  9. REXULTI [Suspect]
     Active Substance: BREXPIPRAZOLE
     Route: 065
  10. REXULTI [Suspect]
     Active Substance: BREXPIPRAZOLE
     Indication: Product used for unknown indication
     Route: 065
  11. REXULTI [Suspect]
     Active Substance: BREXPIPRAZOLE
     Route: 065
  12. REXULTI [Suspect]
     Active Substance: BREXPIPRAZOLE
     Route: 048

REACTIONS (10)
  - Discoloured vomit [Fatal]
  - Cardiac failure [Fatal]
  - Fall [Fatal]
  - Hallucination, auditory [Fatal]
  - Internal haemorrhage [Fatal]
  - Respiratory arrest [Fatal]
  - Tremor [Fatal]
  - Underdose [Fatal]
  - Drug ineffective [Fatal]
  - Product use issue [Fatal]
